FAERS Safety Report 4690152-0 (Version None)
Quarter: 2005Q2

REPORT INFORMATION
  Report Type: 
  Country: None (occurrence: None)
  Receive Date: 20050613
  Receipt Date: 20050527
  Transmission Date: 20051028
  Serious: Yes (Hospitalization, Other)
  Sender: FDA-Public Use
  Company Number: 2005JP000931

PATIENT
  Age: 16 Year
  Sex: Female

DRUGS (1)
  1. PROGRAF [Suspect]
     Indication: BONE MARROW TRANSPLANT

REACTIONS (2)
  - ENCEPHALITIS VIRAL [None]
  - HERPES ZOSTER [None]
